FAERS Safety Report 6181835-4 (Version None)
Quarter: 2009Q2

REPORT INFORMATION
  Report Type: 
  Country: None (occurrence: None)
  Receive Date: 20090506
  Receipt Date: 20090428
  Transmission Date: 20091009
  Serious: Yes (Other)
  Sender: FDA-Public Use
  Company Number: US-GENENTECH-282206

PATIENT
  Sex: Female
  Weight: 85.261 kg

DRUGS (1)
  1. HERCEPTIN [Suspect]
     Indication: BREAST CANCER
     Dosage: 499 MG, 3/WEEK
     Route: 042
     Dates: start: 20081112

REACTIONS (1)
  - BLOOD MAGNESIUM DECREASED [None]
